FAERS Safety Report 5126799-7 (Version None)
Quarter: 2006Q4

REPORT INFORMATION
  Report Type: 
  Country: None (occurrence: None)
  Receive Date: 20061010
  Receipt Date: 20061002
  Transmission Date: 20070319
  Serious: Yes (Other)
  Sender: FDA-Public Use
  Company Number: 163-20785-06100073

PATIENT
  Age: 44 Year
  Sex: Female

DRUGS (7)
  1. THALOMID [Suspect]
     Indication: MULTIPLE MYELOMA
     Dosage: 200 MG, 4 IN 1 D, ORAL
     Route: 048
     Dates: start: 20060110, end: 20060918
  2. COUMADIN [Concomitant]
  3. ALLOPURINOL [Concomitant]
  4. AMARYL [Concomitant]
  5. PREVACID [Concomitant]
  6. ADVAIR DISKUS 100/50 [Concomitant]
  7. FENTANYL [Concomitant]

REACTIONS (2)
  - BLOOD HUMAN CHORIONIC GONADOTROPIN INCREASED [None]
  - PREGNANCY TEST FALSE POSITIVE [None]
